FAERS Safety Report 8271130-1 (Version None)
Quarter: 2012Q2

REPORT INFORMATION
  Report Type: 
  Country: None (occurrence: None)
  Receive Date: 20120410
  Receipt Date: 20120404
  Transmission Date: 20120825
  Serious: Yes (Death, Other)
  Sender: FDA-Public Use
  Company Number: JP-PFIZER INC-2012077410

PATIENT
  Age: 59 Year
  Sex: Male

DRUGS (3)
  1. CYTARABINE [Concomitant]
     Dosage: UNK
  2. METHOTREXATE SODIUM [Suspect]
     Indication: NON-HODGKIN'S LYMPHOMA
     Dosage: 1000 MG/M2 PER DAY (200 MG/M2 + 800 MG /M2)
     Route: 041
     Dates: start: 20120319
  3. LEUCOVORIN CALCIUM [Concomitant]
     Dosage: 15 MG EVERY 6 HRS

REACTIONS (5)
  - DRUG LEVEL INCREASED [None]
  - TUMOUR LYSIS SYNDROME [None]
  - NON-HODGKIN'S LYMPHOMA [None]
  - DISEASE PROGRESSION [None]
  - BLOOD CREATININE INCREASED [None]
